FAERS Safety Report 5308000-4 (Version None)
Quarter: 2007Q1

REPORT INFORMATION
  Report Type: 
  Country: None (occurrence: None)
  Receive Date: 20070130
  Receipt Date: 20060719
  Transmission Date: 20070707
  Serious: Yes (Other)
  Sender: FDA-Public Use
  Company Number: 200613052BCC

PATIENT
  Age: 50 Year
  Sex: Male
  Weight: 81.6475 kg

DRUGS (2)
  1. ALEVE COLD AND SINUS [Suspect]
     Indication: NASAL CONGESTION
     Dosage: SEE IMAGE
     Route: 048
     Dates: start: 20020101
  2. ALEVE COLD AND SINUS [Suspect]
     Indication: NASAL CONGESTION
     Dosage: SEE IMAGE
     Route: 048
     Dates: start: 20060718

REACTIONS (2)
  - DYSPHAGIA [None]
  - DYSPNOEA [None]
